FAERS Safety Report 14454406 (Version 3)
Quarter: 2018Q3

REPORT INFORMATION
  Report Type: Report from Study
  Country: DE (occurrence: DE)
  Receive Date: 20180129
  Receipt Date: 20180810
  Transmission Date: 20181010
  Serious: Yes (Hospitalization)
  Sender: FDA-Public Use
  Company Number: DE-TEVA-2018-DE-850024

PATIENT
  Age: 57 Year
  Sex: Male
  Weight: 81 kg

DRUGS (25)
  1. PANTOZOL [Concomitant]
     Active Substance: PANTOPRAZOLE SODIUM
     Indication: PROPHYLAXIS
     Dosage: 40 MILLIGRAM DAILY; 40 MILLIGRAM
     Route: 048
  2. FORTECORTIN [Concomitant]
     Active Substance: DEXAMETHASONE
     Indication: DYSPNOEA
     Dosage: 8 MILLIGRAM DAILY; 8 MILLIGRAM
     Route: 048
     Dates: start: 201711, end: 20180201
  3. KALINOR BRAUSE [Concomitant]
     Indication: HYPOKALAEMIA
     Route: 048
     Dates: start: 20180117, end: 20180117
  4. FENISTIL [Concomitant]
     Active Substance: DIMETHINDENE
     Indication: PROPHYLAXIS
     Route: 041
     Dates: start: 20171130, end: 20180110
  5. SEVREDOL [Concomitant]
     Active Substance: MORPHINE
     Dates: end: 20180201
  6. MCP [Concomitant]
     Active Substance: METOCLOPRAMIDE HYDROCHLORIDE
     Indication: PROPHYLAXIS
     Route: 048
     Dates: start: 20171201, end: 201801
  7. ABRAXANE [Suspect]
     Active Substance: PACLITAXEL
     Indication: NON-SMALL CELL LUNG CANCER
     Dosage: 100 MG/M2 DAILY; 100 MILLIGRAM/SQ. METER
     Route: 041
     Dates: start: 20171130
  8. STEROFUNDIN BG?5 [Concomitant]
     Route: 041
     Dates: start: 20180117, end: 20180117
  9. DULCOLAX NOS [Concomitant]
     Active Substance: BISACODYL OR DOCUSATE SODIUM
     Indication: CONSTIPATION
     Route: 048
     Dates: start: 20180117, end: 20180117
  10. RANITIC [Concomitant]
     Active Substance: RANITIDINE HYDROCHLORIDE
     Indication: PROPHYLAXIS
     Route: 041
     Dates: start: 20171130, end: 20180110
  11. CARBOPLATIN. [Suspect]
     Active Substance: CARBOPLATIN
     Indication: NON-SMALL CELL LUNG CANCER
     Dosage: 3 MILLIGRAM/MILLILITERS
     Route: 041
     Dates: start: 20171130
  12. KEVATRIL [Concomitant]
     Active Substance: GRANISETRON HYDROCHLORIDE
     Indication: PROPHYLAXIS
     Route: 041
     Dates: start: 20171130, end: 20180110
  13. KALINOR BRAUSE [Concomitant]
     Route: 048
     Dates: start: 20180124, end: 20180124
  14. STEROFUNDIN BG?5 [Concomitant]
     Indication: PROPHYLAXIS
     Route: 041
     Dates: start: 20180124, end: 20180124
  15. PALLADON [Concomitant]
     Active Substance: HYDROMORPHONE
     Indication: TUMOUR PAIN
     Route: 048
     Dates: start: 201711, end: 201712
  16. MOVICOL [Concomitant]
     Active Substance: POLYETHYLENE GLYCOL 3350\POTASSIUM CHLORIDE\SODIUM BICARBONATE\SODIUM CHLORIDE
     Indication: PROPHYLAXIS
     Dosage: 13.81 MILLIGRAM DAILY; 13.81 MILLIGRAM
     Route: 048
  17. SEVREDOL [Concomitant]
     Active Substance: MORPHINE
     Indication: TUMOUR PAIN
     Route: 048
     Dates: start: 20180110, end: 20180201
  18. CLEXANE [Concomitant]
     Active Substance: ENOXAPARIN SODIUM
     Indication: PULMONARY EMBOLISM
     Dosage: 1.8 MILLIGRAM DAILY; 1.8 MILLILITER
     Route: 058
     Dates: start: 201711
  19. NOVALGIN (METAMIZOLE SODIUM) [Concomitant]
     Active Substance: METAMIZOLE SODIUM
     Route: 048
     Dates: start: 201711, end: 20180201
  20. L?THYROXIN [Concomitant]
     Active Substance: LEVOTHYROXINE SODIUM
     Indication: HYPOTHYROIDISM
     Dosage: 100 MILLIGRAM DAILY; 100 MICROGRAM
     Route: 048
  21. TOREM [Concomitant]
     Active Substance: TORSEMIDE
     Indication: HYPERTENSION
     Dosage: 5 MILLIGRAM DAILY; 5 MILLIGRAM
     Route: 048
     Dates: end: 201801
  22. FORTECORTIN [Concomitant]
     Active Substance: DEXAMETHASONE
     Route: 048
     Dates: start: 20171201, end: 20180113
  23. MST [Concomitant]
     Active Substance: MORPHINE SULFATE\NALTREXONE HYDROCHLORIDE
     Indication: TUMOUR PAIN
     Route: 048
     Dates: start: 201712, end: 20180201
  24. MAGNESIUM VERLA [Concomitant]
     Active Substance: MAGNESIUM
     Indication: PROPHYLAXIS
     Route: 048
     Dates: end: 20171201
  25. NOVALGIN (METAMIZOLE SODIUM) [Concomitant]
     Active Substance: METAMIZOLE SODIUM
     Indication: TUMOUR PAIN
     Route: 041
     Dates: start: 20180117, end: 20180117

REACTIONS (2)
  - Anaemia [Recovering/Resolving]
  - Lung infection [Not Recovered/Not Resolved]

NARRATIVE: CASE EVENT DATE: 20171207
